FAERS Safety Report 14838806 (Version 3)
Quarter: 2018Q3

REPORT INFORMATION
  Report Type: Spontaneous
  Country: CA (occurrence: CA)
  Receive Date: 20180502
  Receipt Date: 20180830
  Transmission Date: 20181010
  Serious: Yes (Hospitalization, Other)
  Sender: FDA-Public Use
  Company Number: CA-PFIZER INC-2018174254

PATIENT
  Age: 3 Year
  Sex: Male

DRUGS (8)
  1. SYNTHROID [Concomitant]
     Active Substance: LEVOTHYROXINE SODIUM
     Dosage: 0.044 MG, DAILY
     Route: 048
  2. TOPAMAX [Concomitant]
     Active Substance: TOPIRAMATE
     Dosage: 12.5 MG, 2X/DAY
  3. GENOTROPIN GOQUICK [Suspect]
     Active Substance: SOMATROPIN
     Indication: GROWTH HORMONE DEFICIENCY
     Dosage: 0.3 MG, 1X/DAY
     Route: 058
     Dates: start: 20170705, end: 201804
  4. CYPROHEPTADINE. [Concomitant]
     Active Substance: CYPROHEPTADINE
     Dosage: 4 ML, 2X/DAY, ALTERNATING BY TAKING 14 DAYS IN A ROW, AND NOT TAKING FOR 4 DAYS
     Route: 048
     Dates: start: 201708
  5. GENOTROPIN GOQUICK [Suspect]
     Active Substance: SOMATROPIN
     Dosage: 0.35MG DAILY (FOR FOUR DAYS MON?THURS), AND 0.4MG DAILY ( FOR 3 DAYS FRI?SUN)
     Route: 058
     Dates: start: 201804
  6. FRISIUM [Concomitant]
     Active Substance: CLOBAZAM
     Dosage: 10 MG, DAILY IN THE EVENING
     Route: 048
  7. KEPPRA [Concomitant]
     Active Substance: LEVETIRACETAM
     Dosage: 375 MG, 2X/DAY
     Route: 048
  8. PREDNISOLONE. [Concomitant]
     Active Substance: PREDNISOLONE
     Dosage: 0.6 ML, 2X/DAY
     Route: 048

REACTIONS (6)
  - Therapeutic response unexpected [Unknown]
  - Intentional underdose [Unknown]
  - Cortisol deficiency [Unknown]
  - Hypothalamo-pituitary disorder [Unknown]
  - Hydrocephalus [Unknown]
  - Pre-existing condition improved [Unknown]
